FAERS Safety Report 6306207-0 (Version None)
Quarter: 2009Q3

REPORT INFORMATION
  Report Type: 
  Country: None (occurrence: None)
  Receive Date: 20090810
  Receipt Date: 20090724
  Transmission Date: 20100115
  Serious: Yes (Other)
  Sender: FDA-Public Use
  Company Number: 2008AL006729

PATIENT
  Sex: Female

DRUGS (35)
  1. DIGOXIN [Suspect]
     Dosage: 0.125MG,  PO
     Route: 048
  2. MIRTAZAPINE [Concomitant]
  3. MEGESTROL ACETATE [Concomitant]
  4. NEXIUM [Concomitant]
  5. WARFARIN SODIUM [Concomitant]
  6. PANTOPRAZOLE SODIUM [Concomitant]
  7. . [Concomitant]
  8. FUROSEMIDE [Concomitant]
  9. PREDNISONE [Concomitant]
  10. FLUCONAZOLE [Concomitant]
  11. NYSTATIN [Concomitant]
  12. CYCLOPHOSPHAMIDE [Concomitant]
  13. ONDANSETRON [Concomitant]
  14. AMLODIPINE BESYLATE [Concomitant]
  15. PROPOXYPHEN-APAP [Concomitant]
  16. METOPROLOL TARTRATE [Concomitant]
  17. LISINOPRIL [Concomitant]
  18. LEVAQUIN [Concomitant]
  19. PROPAFENONE HCL [Concomitant]
  20. PATANOL [Concomitant]
  21. MECLIZINE [Concomitant]
  22. MEPHYTON [Concomitant]
  23. HYDROXYCHLOROQUINE SULFATE [Concomitant]
  24. VANCOMYCIN [Concomitant]
  25. PROTONIX [Concomitant]
  26. CIPROFLOXACIN [Concomitant]
  27. RISPERDAL [Concomitant]
  28. MOMETASONE FUROATE [Concomitant]
  29. FUROATE [Concomitant]
  30. METRONIDAZOLE [Concomitant]
  31. CEFDINIR [Concomitant]
  32. VALTREX [Concomitant]
  33. LYRICA [Concomitant]
  34. HYDROCODONE-APA [Concomitant]
  35. TAMIFLU [Concomitant]

REACTIONS (6)
  - CARDIAC DISORDER [None]
  - CEREBROVASCULAR ACCIDENT [None]
  - DIZZINESS [None]
  - SYNCOPE [None]
  - VISUAL IMPAIRMENT [None]
  - WEIGHT DECREASED [None]
